FAERS Safety Report 9528420 (Version 1)
Quarter: 2013Q3

REPORT INFORMATION
  Report Type: Spontaneous
  Country: IT (occurrence: IT)
  Receive Date: 20130917
  Receipt Date: 20130917
  Transmission Date: 20140515
  Serious: Yes (Other)
  Sender: FDA-Public Use
  Company Number: IT-PFIZER INC-2013263754

PATIENT
  Age: 56 Year
  Sex: Male

DRUGS (3)
  1. IRINOTECAN HCL [Suspect]
     Indication: COLON CANCER
     Dosage: 200 MG, 1X/DAY
     Route: 042
  2. FLUOROURACIL [Concomitant]
     Dosage: UNK
  3. FOLINIC ACID [Concomitant]
     Dosage: UNK

REACTIONS (2)
  - Hyperpyrexia [Recovered/Resolved]
  - Chills [Recovered/Resolved]
